FAERS Safety Report 7250724-6 (Version None)
Quarter: 2011Q1

REPORT INFORMATION
  Report Type: 
  Country: None (occurrence: None)
  Receive Date: 20110121
  Receipt Date: 20110121
  Transmission Date: 20110831
  Serious: Yes (Life-Threatening)
  Sender: FDA-Public Use
  Company Number: None

PATIENT
  Age: 31 Year
  Sex: Female
  Weight: 92.1 kg

DRUGS (1)
  1. PENICILLIN 5 MILLION UNITS [Suspect]
     Indication: ANTIBIOTIC PROPHYLAXIS
     Dosage: 5 MILLION UNITS OT IV
     Route: 042
     Dates: start: 20110119, end: 20110119

REACTIONS (3)
  - DYSGEUSIA [None]
  - DYSPNOEA [None]
  - RESPIRATORY DEPRESSION [None]
